FAERS Safety Report 7323803-2 (Version None)
Quarter: 2011Q1

REPORT INFORMATION
  Report Type: 
  Country: None (occurrence: None)
  Receive Date: 20110301
  Receipt Date: 20110222
  Transmission Date: 20110831
  Serious: Yes (Hospitalization, Congenital Anomaly)
  Sender: FDA-Public Use
  Company Number: A0859254A

PATIENT
  Sex: Male
  Weight: 2 kg

DRUGS (2)
  1. PAXIL [Suspect]
     Dosage: 20MG PER DAY
     Route: 064
     Dates: start: 20081001, end: 20090401
  2. PRENATAL VITAMINS [Concomitant]
     Route: 064

REACTIONS (6)
  - PATENT DUCTUS ARTERIOSUS [None]
  - TRANSPOSITION OF THE GREAT VESSELS [None]
  - ATRIAL SEPTAL DEFECT [None]
  - DRUG EXPOSURE DURING PREGNANCY [None]
  - CONGENITAL CORONARY ARTERY MALFORMATION [None]
  - PULMONARY HYPERTENSION [None]
